FAERS Safety Report 4609790-6 (Version None)
Quarter: 2005Q1

REPORT INFORMATION
  Report Type: 
  Country: None (occurrence: None)
  Receive Date: 20050316
  Receipt Date: 20050309
  Transmission Date: 20050727
  Serious: Yes (Hospitalization)
  Sender: FDA-Public Use
  Company Number: US-KINGPHARMUSA00001-K200500341

PATIENT
  Age: 67 Year
  Sex: Female

DRUGS (5)
  1. ALTACE [Suspect]
     Dosage: 10 MG, QD
     Route: 048
     Dates: start: 20041001, end: 20041105
  2. CIPRAMIL [Suspect]
     Dosage: 40 MG, QD
     Route: 048
     Dates: start: 20041001, end: 20041104
  3. CIPRAMIL [Suspect]
     Dosage: 20 MG, QD
     Route: 048
     Dates: start: 20041105, end: 20041109
  4. METOPROLOL [Suspect]
     Route: 048
     Dates: start: 20041001, end: 20041108
  5. OMEPRAZOLE [Concomitant]
     Dosage: 40 MG, QD
     Route: 048
     Dates: start: 20041001, end: 20041104

REACTIONS (5)
  - HYPONATRAEMIA [None]
  - INAPPROPRIATE ANTIDIURETIC HORMONE SECRETION [None]
  - LETHARGY [None]
  - SOMNOLENCE [None]
  - STUPOR [None]
